FAERS Safety Report 7441802-7 (Version None)
Quarter: 2011Q2

REPORT INFORMATION
  Report Type: 
  Country: None (occurrence: None)
  Receive Date: 20110426
  Receipt Date: 20110426
  Transmission Date: 20111010
  Serious: Yes (Disabling)
  Sender: FDA-Public Use
  Company Number: None

PATIENT
  Sex: Female
  Weight: 46 kg

DRUGS (2)
  1. LEUPROLIDE ACETATE [Suspect]
     Dosage: LUPRON .25 CC ( 50 MCG./KG/DAY) DAILY SUBCUTANEOUS
     Route: 058
     Dates: start: 19961201, end: 19981001
  2. LEUPROLIDE ACETATE [Suspect]
     Indication: TRUE PRECOCIOUS PUBERTY
     Dosage: LUPRON 11.25 CC MONTHLY IM
     Route: 030
     Dates: start: 19960801, end: 19961101

REACTIONS (6)
  - ARTHROPATHY [None]
  - BODY HEIGHT DECREASED [None]
  - INTERVERTEBRAL DISC DEGENERATION [None]
  - CERVICAL SPINAL STENOSIS [None]
  - ASTHENIA [None]
  - PARAESTHESIA [None]
